FAERS Safety Report 12461753 (Version 5)
Quarter: 2017Q3

REPORT INFORMATION
  Report Type: Spontaneous
  Country: US (occurrence: US)
  Receive Date: 20160613
  Receipt Date: 20170803
  Transmission Date: 20171127
  Serious: Yes (Other)
  Sender: FDA-Public Use
  Company Number: US-PFIZER INC-2016293083

PATIENT
  Age: 66 Year
  Sex: Female

DRUGS (4)
  1. CELEBREX [Suspect]
     Active Substance: CELECOXIB
     Dosage: 200 MG, 1X/DAY
  2. CELEBREX [Suspect]
     Active Substance: CELECOXIB
     Dosage: UNK
  3. CELEBREX [Suspect]
     Active Substance: CELECOXIB
     Indication: PAIN
     Dosage: 200 MG, 2X/DAY
  4. CELEBREX [Suspect]
     Active Substance: CELECOXIB
     Dosage: 100 MG, 1X/DAY

REACTIONS (16)
  - Drug ineffective [Unknown]
  - Condition aggravated [Not Recovered/Not Resolved]
  - Musculoskeletal discomfort [Unknown]
  - Blood glucose decreased [Unknown]
  - Back pain [Unknown]
  - Mobility decreased [Unknown]
  - Pain [Not Recovered/Not Resolved]
  - Insomnia [Unknown]
  - Limb injury [Unknown]
  - Kidney infection [Recovered/Resolved]
  - Musculoskeletal pain [Unknown]
  - Contusion [Unknown]
  - Intentional product misuse [Unknown]
  - Malabsorption [Unknown]
  - Fall [Unknown]
  - Eating disorder [Unknown]

NARRATIVE: CASE EVENT DATE: 201502
